FAERS Safety Report 15696140 (Version 1)
Quarter: 2018Q4

REPORT INFORMATION
  Report Type: Spontaneous
  Country: CN (occurrence: CN)
  Receive Date: 20181206
  Receipt Date: 20181206
  Transmission Date: 20190205
  Serious: Yes (Hospitalization)
  Sender: FDA-Public Use
  Company Number: CN-PFIZER INC-2018493477

PATIENT
  Age: 19 Year
  Sex: Female
  Weight: 50 kg

DRUGS (1)
  1. ZOLOFT [Suspect]
     Active Substance: SERTRALINE HYDROCHLORIDE
     Indication: DEPRESSION
     Dosage: 20 DF, 1X/DAY
     Route: 048
     Dates: start: 20180819, end: 20180819

REACTIONS (9)
  - Vomiting [Unknown]
  - Altered state of consciousness [Recovering/Resolving]
  - Nausea [Unknown]
  - Headache [Unknown]
  - Intentional overdose [Unknown]
  - Dizziness [Unknown]
  - Productive cough [Recovering/Resolving]
  - Cough [Recovering/Resolving]
  - Somnolence [Unknown]

NARRATIVE: CASE EVENT DATE: 20180819
